FAERS Safety Report 14152611 (Version 1)
Quarter: 2017Q4

REPORT INFORMATION
  Report Type: Spontaneous
  Country: US (occurrence: US)
  Receive Date: 20171102
  Receipt Date: 20171102
  Transmission Date: 20180321
  Serious: Yes (Life-Threatening, Disabling, Other)
  Sender: FDA-Public Use
  Company Number: None

PATIENT
  Age: 59 Year
  Sex: Female
  Weight: 85.5 kg

DRUGS (1)
  1. CIPROFOLXACIN HCL 500MG TAB (AUROBINDO) #14 [Suspect]
     Active Substance: CIPROFLOXACIN HYDROCHLORIDE
     Indication: URINARY TRACT INFECTION
     Dosage: ?          QUANTITY:14 TABLET(S);?
     Route: 048
     Dates: start: 20150309, end: 20150311

REACTIONS (8)
  - Impaired work ability [None]
  - Hepatic failure [None]
  - Discomfort [None]
  - Vitreous adhesions [None]
  - Renal disorder [None]
  - Scan abnormal [None]
  - Tendon injury [None]
  - Retinal injury [None]

NARRATIVE: CASE EVENT DATE: 20150309
